FAERS Safety Report 8052143-1 (Version None)
Quarter: 2012Q1

REPORT INFORMATION
  Report Type: 
  Country: None (occurrence: None)
  Receive Date: 20120118
  Receipt Date: 20120113
  Transmission Date: 20120608
  Serious: No
  Sender: FDA-Public Use
  Company Number: US-PFIZER INC-2012010945

PATIENT
  Sex: Female
  Weight: 65 kg

DRUGS (2)
  1. PREMARIN [Suspect]
     Indication: HYSTERECTOMY
     Dosage: 0.45 MG, 1X/DAY
     Route: 048
     Dates: start: 19900101
  2. PREMARIN [Suspect]
     Dosage: UNK
     Route: 067
     Dates: start: 20090101

REACTIONS (2)
  - NASOPHARYNGITIS [None]
  - COUGH [None]
